FAERS Safety Report 11318622 (Version 1)
Quarter: 2015Q3

REPORT INFORMATION
  Report Type: Spontaneous
  Country: IN (occurrence: IN)
  Receive Date: 20150729
  Receipt Date: 20150729
  Transmission Date: 20151125
  Serious: Yes (Hospitalization)
  Sender: FDA-Public Use
  Company Number: IN-AUROBINDO-AUR-APL-2015-06368

PATIENT
  Age: 30 Month
  Sex: Male

DRUGS (4)
  1. PHENOBARBITONE /00023201/ [Suspect]
     Active Substance: PHENOBARBITAL
     Indication: EPILEPSY
     Route: 065
  2. PHENYTOIN. [Suspect]
     Active Substance: PHENYTOIN
     Indication: EPILEPSY
     Route: 065
  3. CARBAMAZEPINE. [Suspect]
     Active Substance: CARBAMAZEPINE
     Indication: EPILEPSY
     Route: 065
  4. LEVETIRACETAM. [Concomitant]
     Active Substance: LEVETIRACETAM
     Indication: EPILEPSY
     Route: 065

REACTIONS (16)
  - Neuropathy peripheral [Unknown]
  - Prothrombin time prolonged [None]
  - Respiratory distress [Unknown]
  - Drug hypersensitivity [Unknown]
  - Cytomegalovirus infection [Unknown]
  - Jaundice [Unknown]
  - Platelet count increased [None]
  - Drug reaction with eosinophilia and systemic symptoms [Unknown]
  - Pneumonitis [Unknown]
  - Rash maculo-papular [Unknown]
  - Pyrexia [Unknown]
  - Seizure [Unknown]
  - Lymphadenopathy [Unknown]
  - Hepatosplenomegaly [Unknown]
  - Eosinophilia [Unknown]
  - Haemoglobin decreased [None]
